FAERS Safety Report 11414153 (Version 6)
Quarter: 2018Q2

REPORT INFORMATION
  Report Type: Spontaneous
  Country: US (occurrence: US)
  Receive Date: 20150824
  Receipt Date: 20180417
  Transmission Date: 20180711
  Serious: Yes (Hospitalization, Other)
  Sender: FDA-Public Use
  Company Number: US-UCBSA-2015018482

PATIENT
  Age: 72 Year
  Sex: Female
  Weight: 74 kg

DRUGS (22)
  1. DOCUSATE SODIUM. [Concomitant]
     Active Substance: DOCUSATE SODIUM
     Indication: PRODUCT USED FOR UNKNOWN INDICATION
     Dosage: 1 DF, ONCE DAILY (QD)
     Route: 048
  2. METOPROLOL TARTRATE. [Concomitant]
     Active Substance: METOPROLOL TARTRATE
     Indication: PRODUCT USED FOR UNKNOWN INDICATION
     Dosage: 100 MG, 2X/DAY (BID)
     Route: 048
     Dates: start: 20150424
  3. ALENDRONATE SODIUM. [Concomitant]
     Active Substance: ALENDRONATE SODIUM
     Indication: PRODUCT USED FOR UNKNOWN INDICATION
     Dosage: 1 DF, WEEKLY (QW)
     Route: 048
     Dates: start: 20150507
  4. WARFARIN SODIUM. [Concomitant]
     Active Substance: WARFARIN SODIUM
     Indication: THROMBOSIS
     Dosage: 5 MG, ONCE DAILY (QD)
     Route: 048
     Dates: start: 20140812
  5. VIMPAT [Suspect]
     Active Substance: LACOSAMIDE
     Indication: PARTIAL SEIZURES
     Dosage: 100 MG, 2X/DAY (BID)
     Route: 048
     Dates: start: 20150424
  6. ESTRACE [Concomitant]
     Active Substance: ESTRADIOL
     Indication: PRODUCT USED FOR UNKNOWN INDICATION
     Dosage: 1 DF, 2X/WEEK
     Route: 067
  7. TYLENOL PM [Suspect]
     Active Substance: ACETAMINOPHEN\DIPHENHYDRAMINE
     Indication: PRODUCT USED FOR UNKNOWN INDICATION
     Dosage: 325 MG TABLET, AS NEEDED
     Route: 048
  8. GABAPENTIN. [Concomitant]
     Active Substance: GABAPENTIN
     Indication: PRODUCT USED FOR UNKNOWN INDICATION
     Dosage: 300 MG, 2X/DAY (BID)
     Route: 048
     Dates: start: 20140215
  9. STOOL SOFTENER (DOCUSATE) [Concomitant]
     Active Substance: DOCUSATE
     Indication: PRODUCT USED FOR UNKNOWN INDICATION
  10. WARFARIN SODIUM. [Concomitant]
     Active Substance: WARFARIN SODIUM
     Dosage: 2.5 MG, ONCE DAILY (QD)
     Route: 048
     Dates: start: 20150216
  11. ASPIRIN. [Concomitant]
     Active Substance: ASPIRIN
     Indication: PRODUCT USED FOR UNKNOWN INDICATION
     Dosage: 81 MG, ONCE DAILY (QD)
     Route: 048
  12. CALTRATE D PLUS MINERALS [Concomitant]
     Active Substance: CALCIUM\CHOLECALCIFEROL\COPPER\MAGNESIUM\MANGANESE\ZINC
     Indication: PRODUCT USED FOR UNKNOWN INDICATION
     Dosage: 1 DF, ONCE DAILY (QD)
     Route: 048
  13. AMLODIPINE BESYLATE. [Concomitant]
     Active Substance: AMLODIPINE BESYLATE
     Indication: PRODUCT USED FOR UNKNOWN INDICATION
     Dosage: 1 DF, ONCE DAILY (QD)
     Route: 048
     Dates: start: 20150424
  14. OMEPRAZOLE. [Concomitant]
     Active Substance: OMEPRAZOLE
     Indication: PRODUCT USED FOR UNKNOWN INDICATION
     Dosage: 1 DF, ONCE DAILY (QD)
     Route: 048
     Dates: start: 20140114
  15. POLYETHYLENE GLYCOL [Concomitant]
     Active Substance: POLYETHYLENE GLYCOLS
     Indication: PRODUCT USED FOR UNKNOWN INDICATION
     Dosage: 2 TIMES DAILY AS NEEDED
  16. DIPHENHYDRAMINE HCL [Concomitant]
     Active Substance: DIPHENHYDRAMINE HYDROCHLORIDE
     Indication: PRODUCT USED FOR UNKNOWN INDICATION
     Dosage: 25 MG EVERY 6 HOURS AS NEEDED
     Route: 048
  17. MULTIVITAMIN [Concomitant]
     Active Substance: VITAMINS
     Indication: PRODUCT USED FOR UNKNOWN INDICATION
     Dosage: 500 MG CALCIUM
     Route: 048
  18. FLECAINIDE ACETATE. [Concomitant]
     Active Substance: FLECAINIDE ACETATE
     Indication: PRODUCT USED FOR UNKNOWN INDICATION
     Dosage: 1 DF, 2X/DAY (BID)
     Route: 048
  19. VIMPAT [Suspect]
     Active Substance: LACOSAMIDE
     Dosage: 100 MG, 2X/DAY (BID)
     Route: 048
     Dates: start: 20150424
  20. STATIN [Concomitant]
     Active Substance: UNSPECIFIED INGREDIENT
     Indication: PRODUCT USED FOR UNKNOWN INDICATION
  21. ATORVASTATIN CALCIUM. [Concomitant]
     Active Substance: ATORVASTATIN CALCIUM
     Indication: PRODUCT USED FOR UNKNOWN INDICATION
     Dosage: 1 DF, ONCE DAILY (QD)
     Route: 048
     Dates: start: 20150622
  22. LOSARTAN POTASSIUM. [Concomitant]
     Active Substance: LOSARTAN POTASSIUM
     Indication: PRODUCT USED FOR UNKNOWN INDICATION
     Dosage: 1 DF, ONCE DAILY (QD)
     Route: 048
     Dates: start: 20150424

REACTIONS (6)
  - Memory impairment [Not Recovered/Not Resolved]
  - Fall [Recovered/Resolved]
  - Pelvic fracture [Recovered/Resolved]
  - Asthenia [Not Recovered/Not Resolved]
  - Nasopharyngitis [Not Recovered/Not Resolved]
  - Seizure [Not Recovered/Not Resolved]

NARRATIVE: CASE EVENT DATE: 20150522
